FAERS Safety Report 10019601 (Version 2)
Quarter: 2014Q2

REPORT INFORMATION
  Report Type: Spontaneous
  Country: AU (occurrence: AU)
  Receive Date: 20140318
  Receipt Date: 20140501
  Transmission Date: 20141212
  Serious: Yes (Other)
  Sender: FDA-Public Use
  Company Number: AU-PFIZER INC-2014076752

PATIENT
  Age: 29 Year
  Sex: Male
  Weight: 79 kg

DRUGS (1)
  1. LYRICA [Suspect]
     Indication: NEUROPATHY PERIPHERAL
     Dosage: 25 MG, ONE TO TWO TIMES AT NIGHT
     Route: 048
     Dates: start: 20140119

REACTIONS (3)
  - Haematochezia [Unknown]
  - Rectal haemorrhage [Recovered/Resolved]
  - Haemorrhoids [Recovered/Resolved]
